FAERS Safety Report 14981375 (Version 1)
Quarter: 2018Q2

REPORT INFORMATION
  Report Type: Spontaneous
  Country: US (occurrence: US)
  Receive Date: 20180606
  Receipt Date: 20180606
  Transmission Date: 20180711
  Serious: Yes (Other)
  Sender: FDA-Public Use
  Company Number: US-BEH-2018091239

PATIENT
  Sex: Male
  Weight: 103.4 kg

DRUGS (24)
  1. ACETAMINOPHEN. [Concomitant]
     Active Substance: ACETAMINOPHEN
  2. LOSARTAN. [Concomitant]
     Active Substance: LOSARTAN
  3. HIZENTRA [Suspect]
     Active Substance: HUMAN IMMUNOGLOBULIN G
     Dosage: UNK
     Route: 058
  4. HIZENTRA [Suspect]
     Active Substance: HUMAN IMMUNOGLOBULIN G
     Dosage: 18 G, QW
     Route: 058
     Dates: start: 20160711
  5. GEMFIBROZIL. [Concomitant]
     Active Substance: GEMFIBROZIL
  6. TIZANIDINE. [Concomitant]
     Active Substance: TIZANIDINE
  7. TOPIRAMATE. [Concomitant]
     Active Substance: TOPIRAMATE
  8. DEXILANT [Concomitant]
     Active Substance: DEXLANSOPRAZOLE
  9. PROBIOTIC                          /06395501/ [Concomitant]
     Active Substance: BIFIDOBACTERIUM ANIMALIS LACTIS
  10. ASPIRIN. [Concomitant]
     Active Substance: ASPIRIN
  11. BIOTIN [Concomitant]
     Active Substance: BIOTIN
  12. MULTIVITAMIN                       /00097801/ [Concomitant]
     Active Substance: VITAMINS
  13. VITAMIN D3 [Concomitant]
     Active Substance: CHOLECALCIFEROL
  14. LIOTHYRONINE [Concomitant]
     Active Substance: LIOTHYRONINE
  15. NALTREXONE [Concomitant]
     Active Substance: NALTREXONE
  16. DIPHENHYDRAMINE. [Concomitant]
     Active Substance: DIPHENHYDRAMINE
  17. CYMBALTA [Concomitant]
     Active Substance: DULOXETINE HYDROCHLORIDE
  18. NATTOKINASE [Concomitant]
     Active Substance: NATTOKINASE
  19. HIZENTRA [Suspect]
     Active Substance: HUMAN IMMUNOGLOBULIN G
     Indication: IMMUNODEFICIENCY COMMON VARIABLE
     Dosage: UNK
     Route: 058
  20. EPINEPHRINE. [Concomitant]
     Active Substance: EPINEPHRINE
  21. FISH OIL [Concomitant]
     Active Substance: FISH OIL
  22. ZYRTEC [Concomitant]
     Active Substance: CETIRIZINE HYDROCHLORIDE
  23. LYRICA [Concomitant]
     Active Substance: PREGABALIN
  24. LEVOTHYROXINE. [Concomitant]
     Active Substance: LEVOTHYROXINE

REACTIONS (2)
  - Lyme disease [Unknown]
  - Gastrointestinal infection [Unknown]
